FAERS Safety Report 7737067-9 (Version None)
Quarter: 2011Q3

REPORT INFORMATION
  Report Type: 
  Country: None (occurrence: None)
  Receive Date: 20110908
  Receipt Date: 20110826
  Transmission Date: 20111222
  Serious: Yes (Hospitalization, Other)
  Sender: FDA-Public Use
  Company Number: US-ELI_LILLY_AND_COMPANY-US201104006798

PATIENT
  Sex: Female

DRUGS (15)
  1. PREDNISONE [Concomitant]
     Dosage: 5 MG, QD
  2. XALATAN [Concomitant]
  3. FISH OIL [Concomitant]
  4. FORTEO [Suspect]
     Indication: OSTEOPOROSIS
     Dosage: 20 UG, QD
     Route: 065
     Dates: start: 20100114
  5. FORTEO [Suspect]
     Dosage: 20 UG, QD
     Route: 065
  6. LOTREL [Concomitant]
     Dosage: UNK, QD
  7. ASPIRIN [Concomitant]
  8. CENTRUM [Concomitant]
  9. CALCIUM CARBONATE [Concomitant]
  10. FORTEO [Suspect]
     Dosage: 20 UG, QD
     Route: 065
  11. METHOTREXATE [Concomitant]
     Dosage: UNK, WEEKLY (1/W)
  12. LOZAL [Concomitant]
  13. FOLIC ACID [Concomitant]
  14. NORCO [Concomitant]
     Indication: PAIN
  15. VITAMIN D [Concomitant]

REACTIONS (5)
  - HEART RATE DECREASED [None]
  - ARTHRALGIA [None]
  - CONSTIPATION [None]
  - HYPOTENSION [None]
  - OEDEMA PERIPHERAL [None]
